FAERS Safety Report 23075479 (Version 1)
Quarter: 2023Q4

REPORT INFORMATION
  Report Type: Spontaneous
  Country: US (occurrence: US)
  Receive Date: 20231017
  Receipt Date: 20231017
  Transmission Date: 20240110
  Serious: Yes (Life-Threatening, Hospitalization)
  Sender: FDA-Public Use
  Company Number: US-TEVA-2023-US-2935217

PATIENT
  Age: 16 Year
  Sex: Female

DRUGS (2)
  1. BUPROPION [Suspect]
     Active Substance: BUPROPION
     Indication: Suicide attempt
     Dosage: 9300MG EXTENDED RELEASE
     Route: 048
  2. BUPROPION [Suspect]
     Active Substance: BUPROPION
     Indication: Intentional overdose

REACTIONS (8)
  - Sinus tachycardia [Recovering/Resolving]
  - Agitation [Recovering/Resolving]
  - Confusional state [Recovering/Resolving]
  - Ileus [Recovering/Resolving]
  - Hypotension [Recovering/Resolving]
  - Seizure [Recovering/Resolving]
  - Pulmonary oedema [Recovering/Resolving]
  - Intentional overdose [Unknown]
